FAERS Safety Report 7169875-X (Version None)
Quarter: 2010Q4

REPORT INFORMATION
  Report Type: 
  Country: None (occurrence: None)
  Receive Date: 20101217
  Receipt Date: 20101214
  Transmission Date: 20110411
  Serious: Yes (Death, Other)
  Sender: FDA-Public Use
  Company Number: PHHY2010DE84331

PATIENT
  Sex: Female
  Weight: 70 kg

DRUGS (1)
  1. EXELON [Suspect]
     Indication: DEMENTIA ALZHEIMER'S TYPE
     Dosage: 9.6 MG, QD
     Route: 062
     Dates: start: 20080107

REACTIONS (3)
  - ARRHYTHMIA [None]
  - DEATH [None]
  - DISORIENTATION [None]
